FAERS Safety Report 23994456 (Version 1)
Quarter: 2024Q2

REPORT INFORMATION
  Report Type: Spontaneous
  Country: US (occurrence: US)
  Receive Date: 20240620
  Receipt Date: 20240620
  Transmission Date: 20240715
  Serious: Yes (Other)
  Sender: FDA-Public Use
  Company Number: US-BAYER-2024A085916

PATIENT
  Age: 60 Year

DRUGS (2)
  1. BAYER LOW DOSE [Suspect]
     Active Substance: ASPIRIN
  2. APIXABAN [Suspect]
     Active Substance: APIXABAN

REACTIONS (1)
  - Intestinal haemorrhage [None]
